FAERS Safety Report 14666686 (Version 1)
Quarter: 2018Q1

REPORT INFORMATION
  Report Type: Spontaneous
  Country: FR (occurrence: FR)
  Receive Date: 20180322
  Receipt Date: 20180322
  Transmission Date: 20180509
  Serious: Yes (Other)
  Sender: FDA-Public Use
  Company Number: FR-MERCK KGAA-2044260

PATIENT
  Age: 42 Year
  Sex: Female

DRUGS (1)
  1. NOVOTHYROX [Suspect]
     Active Substance: LEVOTHYROXINE SODIUM
     Indication: PRODUCT USED FOR UNKNOWN INDICATION

REACTIONS (22)
  - Asthenia [None]
  - Irritability [None]
  - Decreased interest [None]
  - Fatigue [None]
  - Pruritus [None]
  - Disturbance in attention [None]
  - Blood cholesterol increased [None]
  - Alopecia [None]
  - Dizziness [None]
  - Myalgia [None]
  - Crying [None]
  - Blood thyroid stimulating hormone increased [None]
  - Weight decreased [None]
  - Loss of personal independence in daily activities [None]
  - Gastrointestinal disorder [None]
  - Dysstasia [None]
  - Feeling abnormal [None]
  - Mean cell volume increased [None]
  - Lymphocyte count increased [None]
  - Monocyte count increased [None]
  - Apathy [None]
  - Social avoidant behaviour [None]

NARRATIVE: CASE EVENT DATE: 20170927
